FAERS Safety Report 25289226 (Version 2)
Quarter: 2025Q2

REPORT INFORMATION
  Report Type: Spontaneous
  Country: FR (occurrence: FR)
  Receive Date: 20250509
  Receipt Date: 20250515
  Transmission Date: 20250717
  Serious: Yes (Other)
  Sender: REGENERON
  Company Number: FR-BAYER-2025A056318

PATIENT
  Age: 66 Year
  Sex: Female

DRUGS (2)
  1. EYLEA [Suspect]
     Active Substance: AFLIBERCEPT
     Indication: Diabetic retinal oedema
  2. EYLEA [Suspect]
     Active Substance: AFLIBERCEPT
     Dates: start: 20250411

REACTIONS (5)
  - Macular oedema [Not Recovered/Not Resolved]
  - Eye inflammation [Unknown]
  - Uveitis [Unknown]
  - Visual acuity reduced [Recovering/Resolving]
  - Anterior chamber flare [Recovered/Resolved]

NARRATIVE: CASE EVENT DATE: 20250416
